FAERS Safety Report 6697497-3 (Version None)
Quarter: 2010Q2

REPORT INFORMATION
  Report Type: 
  Country: None (occurrence: None)
  Receive Date: 20100426
  Receipt Date: 20100416
  Transmission Date: 20101027
  Serious: Yes (Other)
  Sender: FDA-Public Use
  Company Number: US-ABBOTT-10P-163-0639410-00

PATIENT
  Sex: Female
  Weight: 94.886 kg

DRUGS (11)
  1. HUMIRA [Suspect]
     Indication: CROHN'S DISEASE
     Route: 058
     Dates: start: 20100115, end: 20100115
  2. HUMIRA [Suspect]
     Route: 058
     Dates: start: 20100129, end: 20100129
  3. HUMIRA [Suspect]
     Route: 058
     Dates: start: 20100212, end: 20100312
  4. LASIX [Concomitant]
     Indication: JOINT SWELLING
  5. CRESTOR [Concomitant]
     Indication: BLOOD CHOLESTEROL INCREASED
  6. CELEXA [Concomitant]
     Indication: DEPRESSION
  7. SYNTHROID [Concomitant]
     Indication: HYPOTHYROIDISM
  8. NEXIUM [Concomitant]
     Indication: GASTROOESOPHAGEAL REFLUX DISEASE
  9. PENTASA [Concomitant]
     Indication: CROHN'S DISEASE
  10. TRAZODONE HCL [Concomitant]
     Indication: INSOMNIA
  11. XANAX [Concomitant]
     Indication: ANXIETY

REACTIONS (6)
  - ABDOMINAL DISTENSION [None]
  - ABDOMINAL PAIN [None]
  - CHOLELITHIASIS [None]
  - FLATULENCE [None]
  - GALLBLADDER DISORDER [None]
  - INTESTINAL OBSTRUCTION [None]
